FAERS Safety Report 10956538 (Version 1)
Quarter: 2015Q1

REPORT INFORMATION
  Report Type: Spontaneous
  Country: US (occurrence: None)
  Receive Date: 20150226
  Receipt Date: 20150226
  Transmission Date: 20150721
  Serious: Yes (Other)
  Sender: FDA-Public Use
  Company Number: TPA2011A07144

PATIENT
  Age: 63 Year
  Sex: Male
  Weight: 127.01 kg

DRUGS (6)
  1. UNKNOWN MEDICATIONS FOR TYPE II DIABETES (DRUG USED IN DIABETES) [Concomitant]
  2. ASPIRIN (ACETYLSALICYLIC ACID) [Concomitant]
     Active Substance: ASPIRIN
  3. UNKNOWN MEDICATIONS FOR HIGH BLOOD PRESSURE (ANTIHYPERTENSIVES) [Concomitant]
  4. ACTOS [Suspect]
     Active Substance: PIOGLITAZONE HYDROCHLORIDE
     Indication: TYPE 2 DIABETES MELLITUS
     Dosage: 1 IN 1 D
     Route: 048
  5. UNKNOWN MEDICATIONS FOR HIGH CHOLESTEROL (CHOLESTEROL AND TRIGLYCERIDE REDUCERS) [Concomitant]
  6. INSULIN [Concomitant]
     Active Substance: INSULIN NOS

REACTIONS (4)
  - Dyspnoea [None]
  - Fatigue [None]
  - Cardiac failure congestive [None]
  - Weight increased [None]
